FAERS Safety Report 7374853-1 (Version None)
Quarter: 2011Q1

REPORT INFORMATION
  Report Type: 
  Country: None (occurrence: None)
  Receive Date: 20110325
  Receipt Date: 20110315
  Transmission Date: 20110831
  Serious: Yes (Hospitalization)
  Sender: FDA-Public Use
  Company Number: IT-TEVA-271515ISR

PATIENT
  Sex: Male

DRUGS (4)
  1. ACETYLSALICYLIC ACID [Concomitant]
     Route: 048
  2. NIFEDIPINE [Concomitant]
     Route: 048
  3. GENTAMICIN W/BETAMETHASONE [Suspect]
     Indication: ECZEMA
     Dosage: 0.1% + 0.1%
     Route: 061
     Dates: start: 20110227, end: 20110227
  4. COSOPT [Suspect]
     Indication: GLAUCOMA
     Dosage: 2% +0.5%
     Route: 047
     Dates: start: 20101101, end: 20110304

REACTIONS (2)
  - ANGIOEDEMA [None]
  - PRURITUS GENERALISED [None]
